FAERS Safety Report 4558369-3 (Version None)
Quarter: 2005Q1

REPORT INFORMATION
  Report Type: 
  Country: None (occurrence: None)
  Receive Date: 20050121
  Receipt Date: 20050113
  Transmission Date: 20050727
  Serious: Yes (Life-Threatening)
  Sender: FDA-Public Use
  Company Number: JP-MERCK-0501USA02641

PATIENT
  Age: 73 Year
  Sex: Female

DRUGS (4)
  1. FOSAMAX [Suspect]
     Indication: OSTEOPOROSIS
     Route: 048
     Dates: start: 20040101, end: 20040101
  2. THYRADIN [Concomitant]
     Indication: HYPOTHYROIDISM
     Route: 048
  3. VITAMINS (UNSPECIFIED) [Concomitant]
     Indication: OSTEOPOROSIS
     Route: 048
  4. CHOLECALCIFEROL [Concomitant]
     Route: 065

REACTIONS (2)
  - GASTRIC DISORDER [None]
  - LARGE INTESTINE CARCINOMA [None]
